FAERS Safety Report 5741056-3 (Version None)
Quarter: 2008Q2

REPORT INFORMATION
  Report Type: 
  Country: None (occurrence: None)
  Receive Date: 20080516
  Receipt Date: 20080505
  Transmission Date: 20081010
  Serious: Yes (Hospitalization)
  Sender: FDA-Public Use
  Company Number: FR-PFIZER INC-2008039575

PATIENT
  Sex: Female

DRUGS (2)
  1. XALATAN [Suspect]
     Indication: EXTRAOCULAR MUSCLE DISORDER
     Route: 047
  2. COSOPT [Suspect]
     Indication: EXTRAOCULAR MUSCLE DISORDER
     Route: 047

REACTIONS (3)
  - CHOROID MELANOMA [None]
  - DISEASE PROGRESSION [None]
  - EYE PAIN [None]
